FAERS Safety Report 18673162 (Version 1)
Quarter: 2020Q4

REPORT INFORMATION
  Report Type: Spontaneous
  Country: GR (occurrence: GR)
  Receive Date: 20201228
  Receipt Date: 20201228
  Transmission Date: 20210114
  Serious: Yes (Hospitalization, Other)
  Sender: FDA-Public Use
  Company Number: GR-OTSUKA-2020_032843

PATIENT
  Age: 74 Year
  Sex: Female

DRUGS (1)
  1. DECITABINE. [Suspect]
     Active Substance: DECITABINE
     Indication: ACUTE MYELOID LEUKAEMIA
     Dosage: FOR 5 DAYS IN 28-DAY CYCLES (20 MG/M2,1 D)
     Route: 042

REACTIONS (2)
  - Pseudomonas infection [Recovered/Resolved]
  - Deep vein thrombosis [Recovered/Resolved]
